FAERS Safety Report 24303320 (Version 1)
Quarter: 2024Q3

REPORT INFORMATION
  Report Type: Spontaneous
  Country: US (occurrence: None)
  Receive Date: 20240909
  Receipt Date: 20240909
  Transmission Date: 20241017
  Serious: Yes (Other)
  Sender: Public
  Company Number: None

PATIENT
  Age: 72 Year
  Sex: Female
  Weight: 82.57 kg

DRUGS (1)
  1. LEQEMBI [Suspect]
     Active Substance: LECANEMAB-IRMB
     Indication: Dementia Alzheimer^s type
     Dosage: 830 MG EVERY 2 WEEKS INTRAVENOUS
     Route: 042
     Dates: start: 20240729, end: 20240909

REACTIONS (1)
  - Headache [None]

NARRATIVE: CASE EVENT DATE: 20240909
